FAERS Safety Report 9037590 (Version 1)
Quarter: 2012Q4

REPORT INFORMATION
  Report Type: Spontaneous
  Country: JP (occurrence: None)
  Receive Date: 20120905
  Receipt Date: 20120905
  Transmission Date: 20130627
  Serious: Yes (Other)
  Sender: FDA-Public Use
  Company Number: 2012033052

PATIENT

DRUGS (2)
  1. ALBUMIN [Suspect]
     Dosage: on 1st day,  25g/day on 2nd to 3rd day 
(treatment discontinued on 3rd day of therapy)
  2. TERLIPRESSIN [Suspect]
     Dosage: per 8hrs (treatment discontinued on 3rd day of therapy)
     Route: 042

REACTIONS (4)
  - Acute respiratory failure [None]
  - Metabolic acidosis [None]
  - Pneumonia [None]
  - Sepsis [None]
